FAERS Safety Report 12447230 (Version 2)
Quarter: 2016Q2

REPORT INFORMATION
  Report Type: Spontaneous
  Country: US (occurrence: US)
  Receive Date: 20160608
  Receipt Date: 20160629
  Transmission Date: 20160815
  Serious: No
  Sender: FDA-Public Use
  Company Number: US-TAKEDA-2016TUS009429

PATIENT
  Sex: Male
  Weight: 90.7 kg

DRUGS (2)
  1. COLCRYS [Suspect]
     Active Substance: COLCHICINE
     Indication: POST PROCEDURAL INFLAMMATION
  2. COLCRYS [Suspect]
     Active Substance: COLCHICINE
     Indication: CARDIAC ABLATION
     Dosage: 0.6 MG, BID
     Route: 048
     Dates: start: 20160527

REACTIONS (2)
  - Off label use [Not Recovered/Not Resolved]
  - No adverse event [Unknown]
